FAERS Safety Report 4546122-6 (Version None)
Quarter: 2005Q1

REPORT INFORMATION
  Report Type: 
  Country: None (occurrence: None)
  Receive Date: 20050105
  Receipt Date: 20050105
  Transmission Date: 20050727
  Serious: Yes (Life-Threatening, Disabling)
  Sender: FDA-Public Use
  Company Number: None

PATIENT
  Age: 49 Year
  Sex: Female
  Weight: 98.8842 kg

DRUGS (1)
  1. AZITHROMYCIN [Suspect]
     Indication: SINUSITIS
     Dosage: Z-PAK

REACTIONS (5)
  - ABDOMINAL PAIN [None]
  - FLATULENCE [None]
  - GASTRIC DISORDER [None]
  - INFLAMMATION [None]
  - INJURY [None]
